FAERS Safety Report 8046875-9 (Version None)
Quarter: 2012Q1

REPORT INFORMATION
  Report Type: 
  Country: None (occurrence: None)
  Receive Date: 20120116
  Receipt Date: 20120106
  Transmission Date: 20120608
  Serious: Yes (Other)
  Sender: FDA-Public Use
  Company Number: US-JNJFOC-20111212358

PATIENT
  Sex: Male
  Weight: 52.5 kg

DRUGS (32)
  1. REMICADE [Suspect]
     Indication: INFLAMMATORY BOWEL DISEASE
     Route: 042
     Dates: start: 20051103, end: 20090429
  2. ATIVAN [Concomitant]
  3. FLUCONAZOLE [Concomitant]
  4. OXYCODONE HCL [Suspect]
     Indication: PRODUCT USED FOR UNKNOWN INDICATION
  5. OMEPRAZOLE [Suspect]
     Indication: PRODUCT USED FOR UNKNOWN INDICATION
  6. DIPHENHYDRAMINE HCL [Suspect]
     Indication: PRODUCT USED FOR UNKNOWN INDICATION
  7. GENTAMICIN [Concomitant]
  8. CEFEPIME [Concomitant]
  9. SCOPOLAMINE [Concomitant]
  10. CYTARABINE [Suspect]
     Indication: PRODUCT USED FOR UNKNOWN INDICATION
  11. ETOPOSIDE [Suspect]
     Indication: PRODUCT USED FOR UNKNOWN INDICATION
  12. HUMIRA [Concomitant]
     Dates: start: 20090512, end: 20100331
  13. PEPTAMEN [Concomitant]
     Dosage: HIGH CALORIE SUPPLEMENT
  14. ZOSYN [Concomitant]
  15. ONDANSETRON [Concomitant]
  16. ALUMINUM HYDROXIDE [Suspect]
     Indication: PRODUCT USED FOR UNKNOWN INDICATION
  17. CHLORHEXIDINE GLUCONATE [Concomitant]
  18. RANITIDINE [Concomitant]
  19. CHOLECALCIFEROL [Concomitant]
  20. BENADRYL [Concomitant]
  21. ZANTAC [Concomitant]
  22. COTRIM [Concomitant]
  23. ZYRTEC [Concomitant]
  24. AMPHOJEL [Concomitant]
  25. PANTOPRAZOLE [Concomitant]
  26. ANTIBIOTICS [Concomitant]
     Indication: INFLAMMATORY BOWEL DISEASE
  27. CALCIUM CARBONATE [Concomitant]
  28. FLAGYL [Concomitant]
  29. BACTRIM [Concomitant]
  30. MUPIROCIN [Suspect]
     Indication: PRODUCT USED FOR UNKNOWN INDICATION
  31. VANCOMYCIN [Concomitant]
  32. LORAZEPAM [Concomitant]

REACTIONS (1)
  - GASTROINTESTINAL HAEMORRHAGE [None]
